FAERS Safety Report 19793946 (Version 2)
Quarter: 2021Q3

REPORT INFORMATION
  Report Type: Spontaneous
  Country: JP (occurrence: JP)
  Receive Date: 20210907
  Receipt Date: 20210917
  Transmission Date: 20211014
  Serious: Yes (Hospitalization, Other)
  Sender: FDA-Public Use
  Company Number: JP-BRISTOL-MYERS SQUIBB COMPANY-BMS-2021-088407

PATIENT
  Age: 8 Decade
  Sex: Male

DRUGS (1)
  1. ELIQUIS [Suspect]
     Active Substance: APIXABAN
     Indication: CEREBRAL INFARCTION
     Dosage: 10 MILLIGRAM/DAY
     Route: 048

REACTIONS (3)
  - Aortic valve incompetence [Unknown]
  - Haemorrhagic infarction [Unknown]
  - Haemorrhage intracranial [Unknown]
